FAERS Safety Report 9562126 (Version 1)
Quarter: 2013Q3

REPORT INFORMATION
  Report Type: Spontaneous
  Country: US (occurrence: US)
  Receive Date: 20130927
  Receipt Date: 20130927
  Transmission Date: 20140515
  Serious: Yes (Hospitalization, Other)
  Sender: FDA-Public Use
  Company Number: US-JNJFOC-20130913899

PATIENT
  Sex: Female

DRUGS (2)
  1. XARELTO [Suspect]
     Indication: PRODUCT USED FOR UNKNOWN INDICATION
     Route: 048
     Dates: end: 2013
  2. DILAUDID [Suspect]
     Indication: PRODUCT USED FOR UNKNOWN INDICATION
     Route: 065

REACTIONS (5)
  - Hospitalisation [Unknown]
  - Pain [Unknown]
  - Road traffic accident [Recovered/Resolved]
  - Contusion [Unknown]
  - Hypersomnia [Unknown]
